FAERS Safety Report 5207723-5 (Version None)
Quarter: 2006Q4

REPORT INFORMATION
  Report Type: 
  Country: None (occurrence: None)
  Receive Date: 20061030
  Receipt Date: 20060830
  Transmission Date: 20070319
  Serious: No
  Sender: FDA-Public Use
  Company Number: 2006CT000718

PATIENT
  Age: 76 Year
  Sex: Female
  Weight: 73.4827 kg

DRUGS (14)
  1. VENTAVIS [Suspect]
     Indication: PULMONARY HYPERTENSION
     Dosage: 5 UG; 7XD; INH
     Route: 055
     Dates: start: 20060601
  2. SILDENAFIL CITRATE [Concomitant]
  3. PAXIL [Concomitant]
  4. ARAVA [Concomitant]
  5. PREVACID [Concomitant]
  6. IRON [Concomitant]
  7. POTASSIUM CHLORIDE [Concomitant]
  8. LASIX [Concomitant]
  9. PREDNISONE [Concomitant]
  10. CENTRUM SILVER [Concomitant]
  11. CALTRATE [Concomitant]
  12. ASPIRIN [Concomitant]
  13. CELEBREX [Concomitant]
  14. OXYGEN [Concomitant]

REACTIONS (1)
  - FATIGUE [None]
